FAERS Safety Report 6023533-3 (Version None)
Quarter: 2008Q4

REPORT INFORMATION
  Report Type: 
  Country: None (occurrence: None)
  Receive Date: 20081230
  Receipt Date: 20081219
  Transmission Date: 20090506
  Serious: Yes (Hospitalization, Other)
  Sender: FDA-Public Use
  Company Number: PHHY2008CN19564

PATIENT
  Age: 29 Year
  Sex: Female

DRUGS (1)
  1. SEBIVO [Suspect]
     Dosage: UNK
     Dates: start: 20080819, end: 20081204

REACTIONS (3)
  - AMNIOTIC FLUID VOLUME DECREASED [None]
  - CAESAREAN SECTION [None]
  - DRUG EXPOSURE DURING PREGNANCY [None]
